FAERS Safety Report 10854607 (Version 1)
Quarter: 2015Q1

REPORT INFORMATION
  Report Type: Spontaneous
  Country: US (occurrence: US)
  Receive Date: 20150223
  Receipt Date: 20150223
  Transmission Date: 20150721
  Serious: Yes (Hospitalization, Other)
  Sender: FDA-Public Use
  Company Number: US-CELGENEUS-163-21880-14064857

PATIENT
  Age: 67 Year
  Sex: Female
  Weight: 69.01 kg

DRUGS (1)
  1. REVLIMID [Suspect]
     Active Substance: LENALIDOMIDE
     Indication: PLASMA CELL MYELOMA
     Dosage: 20 MILLIGRAM
     Route: 048
     Dates: start: 201406

REACTIONS (3)
  - Haemoglobin decreased [Unknown]
  - Renal impairment [Unknown]
  - Joint swelling [Unknown]

NARRATIVE: CASE EVENT DATE: 20140605
